FAERS Safety Report 25921852 (Version 1)
Quarter: 2025Q4

REPORT INFORMATION
  Report Type: Spontaneous
  Country: CN (occurrence: CN)
  Receive Date: 20251015
  Receipt Date: 20251015
  Transmission Date: 20260118
  Serious: Yes (Other)
  Sender: BAXTER
  Company Number: CN-BAXTER-2025BAX022439

PATIENT
  Age: 27 Year
  Sex: Female

DRUGS (5)
  1. MANNITOL [Suspect]
     Active Substance: MANNITOL
     Indication: CSF pressure
     Dosage: 125 ML, Q8H, OSMOTIC THERAPY
     Route: 042
  2. MANNITOL [Suspect]
     Active Substance: MANNITOL
     Dosage: 125 ML, EVERY 6 H, OSMOTIC THERAPY WAS ESCALATED
     Route: 042
  3. CEFTRIAXONE [Concomitant]
     Active Substance: CEFTRIAXONE
     Indication: Anti-infective therapy
     Dosage: 2 G, QD
     Route: 042
  4. ACYCLOVIR [Concomitant]
     Active Substance: ACYCLOVIR
     Indication: Antiviral treatment
     Dosage: 500 MG, Q8H
     Route: 042
  5. ACYCLOVIR [Concomitant]
     Active Substance: ACYCLOVIR
     Indication: Evidence based treatment

REACTIONS (2)
  - Abortion induced [Unknown]
  - Exposure during pregnancy [Unknown]
